FAERS Safety Report 5919072-8 (Version None)
Quarter: 2008Q3

REPORT INFORMATION
  Report Type: 
  Country: None (occurrence: None)
  Receive Date: 20080909
  Receipt Date: 20061116
  Transmission Date: 20090109
  Serious: Yes (Hospitalization)
  Sender: FDA-Public Use
  Company Number: 163-20785-06110847

PATIENT
  Age: 54 Year
  Sex: Female
  Weight: 55.7 kg

DRUGS (6)
  1. THALOMID [Suspect]
     Indication: NON-SMALL CELL LUNG CANCER
     Dosage: 200 MG WITH A WEEKLY TITRATION OF 100 MG UP TO 1000 MG, QD STARTING ON DAY 1, 21 DAY CYCLE, ORAL
     Route: 048
     Dates: start: 20050428
  2. PACLITAXEL [Suspect]
     Indication: NON-SMALL CELL LUNG CANCER
     Dosage: SEE IMAGE
     Route: 042
     Dates: start: 20050428
  3. PACLITAXEL [Suspect]
     Indication: NON-SMALL CELL LUNG CANCER
     Dosage: SEE IMAGE
     Route: 042
     Dates: start: 20050428
  4. CARBOPLATIN [Suspect]
     Indication: NON-SMALL CELL LUNG CANCER
     Dosage: SEE IMAGE
     Route: 042
     Dates: start: 20050428
  5. CARBOPLATIN [Suspect]
     Indication: NON-SMALL CELL LUNG CANCER
     Dosage: SEE IMAGE
     Route: 042
     Dates: start: 20050428
  6. XRT [Suspect]
     Dosage: 60 GY AT 2.0 GY PER FRACTION, OVER 6 WKS
     Dates: start: 20050428

REACTIONS (4)
  - CARBON DIOXIDE INCREASED [None]
  - COUGH [None]
  - DYSPNOEA [None]
  - HYPOXIA [None]
